FAERS Safety Report 8350472-5 (Version None)
Quarter: 2012Q2

REPORT INFORMATION
  Report Type: 
  Country: None (occurrence: None)
  Receive Date: 20120510
  Receipt Date: 20120504
  Transmission Date: 20120825
  Serious: Yes (Hospitalization)
  Sender: FDA-Public Use
  Company Number: AU-GLAXOSMITHKLINE-B0800226A

PATIENT
  Age: 73 Year
  Sex: Female

DRUGS (1)
  1. NICOTINE [Suspect]
     Indication: EX-TOBACCO USER
     Route: 048
     Dates: start: 20100601

REACTIONS (6)
  - GASTRIC DISORDER [None]
  - DIZZINESS [None]
  - FLATULENCE [None]
  - HEADACHE [None]
  - GASTRITIS [None]
  - ERUCTATION [None]
